FAERS Safety Report 13862676 (Version 2)
Quarter: 2017Q3

REPORT INFORMATION
  Report Type: Report from Study
  Country: US (occurrence: US)
  Receive Date: 20170814
  Receipt Date: 20170818
  Transmission Date: 20171127
  Serious: No
  Sender: FDA-Public Use
  Company Number: US-AMGEN-USASL2017119858

PATIENT
  Age: 35 Year
  Sex: Female

DRUGS (3)
  1. ENBREL [Suspect]
     Active Substance: ETANERCEPT
     Indication: RHEUMATOID ARTHRITIS
     Dosage: UNK
     Route: 065
     Dates: start: 201707
  2. MTX [Concomitant]
     Active Substance: METHOTREXATE SODIUM
     Indication: RHEUMATOID ARTHRITIS
     Dosage: 7 PILLS
  3. MTX [Concomitant]
     Active Substance: METHOTREXATE SODIUM
     Dosage: 8 PILLS WEEKLY

REACTIONS (8)
  - Muscular weakness [Unknown]
  - Paraesthesia [Unknown]
  - Injection site erythema [Unknown]
  - Pruritus generalised [Unknown]
  - Dizziness [Unknown]
  - Injection site macule [Unknown]
  - Injection site pruritus [Unknown]
  - Syncope [Unknown]

NARRATIVE: CASE EVENT DATE: 2017
